FAERS Safety Report 8842027 (Version 2)
Quarter: 2014Q3

REPORT INFORMATION
  Report Type: Spontaneous
  Country: US (occurrence: US)
  Receive Date: 20121016
  Receipt Date: 20140916
  Transmission Date: 20150326
  Serious: Yes (Disabling, Other)
  Sender: FDA-Public Use
  Company Number: US-RANBAXY-2012US-61102

PATIENT
  Age: 32 Year
  Sex: Male

DRUGS (14)
  1. ATROPINE [Concomitant]
     Active Substance: ATROPINE
     Indication: DIARRHOEA
     Dosage: 0.025-0.050 MG, PRN
     Route: 048
  2. VALSARTAN. [Concomitant]
     Active Substance: VALSARTAN
     Indication: HYPERTENSION
     Dosage: UNK
     Route: 048
  3. FAMOTIDINE. [Concomitant]
     Active Substance: FAMOTIDINE
     Indication: GASTROINTESTINAL PAIN
     Dosage: 40 MG, BID
     Route: 048
  4. BUDESONIDE. [Concomitant]
     Active Substance: BUDESONIDE
     Indication: RHINITIS ALLERGIC
     Dosage: 2 PUFFS/DAY TO EACH NOSTRIL
     Route: 045
  5. DIPHENOXYLATE [Concomitant]
     Active Substance: DIPHENOXYLATE
     Indication: DIARRHOEA
     Dosage: 2.5-5 MG, PRN
     Route: 065
  6. MOXIFLOXACIN [Concomitant]
     Active Substance: MOXIFLOXACIN
     Indication: CROHN^S DISEASE
     Dosage: 400 MG, DAILY
     Route: 048
  7. HYDROCHLOROTHIAZIDE. [Concomitant]
     Active Substance: HYDROCHLOROTHIAZIDE
     Indication: HYPERTENSION
     Dosage: 12.5 MG, UNK
     Route: 065
  8. ATORVASTATIN [Suspect]
     Active Substance: ATORVASTATIN
     Indication: HYPERCHOLESTEROLAEMIA
     Dosage: 20 MG, EVERY EVENING
     Route: 048
  9. BUDESONIDE. [Concomitant]
     Active Substance: BUDESONIDE
     Indication: CROHN^S DISEASE
     Dosage: 12 MG, DAILY
     Route: 048
  10. PSEUDOEPHEDRINE [Concomitant]
     Active Substance: PSEUDOEPHEDRINE
     Indication: RHINITIS ALLERGIC
     Dosage: 120 MG/DAY, PRN
     Route: 065
  11. METRONIDAZOLE. [Concomitant]
     Active Substance: METRONIDAZOLE
     Indication: CROHN^S DISEASE
     Dosage: 500 MG, TID
     Route: 048
  12. CETIRIZINE [Concomitant]
     Active Substance: CETIRIZINE HYDROCHLORIDE
     Indication: RHINITIS ALLERGIC
     Dosage: 5 MG, PRN
     Route: 048
  13. HYOSCYAMINE [Concomitant]
     Active Substance: HYOSCYAMINE
     Indication: GASTROINTESTINAL PAIN
     Dosage: 0.125-0.250 MG 3 TIMES/DAY, PRN
     Route: 048
  14. PREDNISONE. [Concomitant]
     Active Substance: PREDNISONE
     Indication: CROHN^S DISEASE
     Dosage: 5-60 MG, DAILY
     Route: 048

REACTIONS (1)
  - Deafness [Not Recovered/Not Resolved]
